FAERS Safety Report 23546116 (Version 1)
Quarter: 2024Q1

REPORT INFORMATION
  Report Type: Spontaneous
  Country: US (occurrence: US)
  Receive Date: 20240220
  Receipt Date: 20240220
  Transmission Date: 20240409
  Serious: Yes (Hospitalization)
  Sender: FDA-Public Use
  Company Number: US-BAUSCH-BL-2024-002664

PATIENT
  Age: 54 Year
  Sex: Male
  Weight: 77.18 kg

DRUGS (4)
  1. XIFAXAN [Suspect]
     Active Substance: RIFAXIMIN
     Indication: Colitis ulcerative
     Route: 065
     Dates: start: 2019, end: 202312
  2. XIFAXAN [Suspect]
     Active Substance: RIFAXIMIN
     Indication: Off label use
  3. XIFAXAN [Suspect]
     Active Substance: RIFAXIMIN
     Indication: Colitis ulcerative
     Route: 048
     Dates: start: 202401
  4. XIFAXAN [Suspect]
     Active Substance: RIFAXIMIN
     Indication: Off label use

REACTIONS (4)
  - Hospitalisation [Unknown]
  - Therapy interrupted [Unknown]
  - Product supply issue [Unknown]
  - Off label use [Unknown]
